FAERS Safety Report 10652703 (Version 1)
Quarter: 2014Q4

REPORT INFORMATION
  Report Type: Not Available
  Country: FI (occurrence: FI)
  Receive Date: 20141215
  Receipt Date: 20141215
  Transmission Date: 20150529
  Serious: Yes (Disabling)
  Sender: FDA-Public Use
  Company Number: FI-MUNDIPHARMA DS AND PHARMACOVIGILANCE-GBR-2014-0024409

PATIENT
  Age: 57 Year
  Sex: Male

DRUGS (6)
  1. SYMBICORT [Concomitant]
     Active Substance: BUDESONIDE\FORMOTEROL FUMARATE DIHYDRATE
     Dosage: 1-2 DF, BID
     Route: 055
     Dates: start: 20100506
  2. OXYCONTIN [Suspect]
     Active Substance: OXYCODONE HYDROCHLORIDE
     Indication: PAIN
     Dosage: 20 MG, BID
     Route: 048
     Dates: start: 20051115
  3. OXYNORM 10 MG KAPSELI, KOVA [Suspect]
     Active Substance: OXYCODONE HYDROCHLORIDE
     Indication: PAIN
     Dosage: 10-80MG, DAILY
     Route: 048
     Dates: start: 20051115
  4. VENTOLIN [Concomitant]
     Active Substance: ALBUTEROL SULFATE
     Dosage: 200 MCG, 1-2 DOSES, 1-4 TIMES DAILY PRN
     Route: 055
     Dates: start: 20070411
  5. SOMAC [Concomitant]
     Active Substance: PANTOPRAZOLE SODIUM
     Dosage: 40 MG, PRN
     Route: 048
     Dates: start: 20051114
  6. MOVICOL [Concomitant]
     Active Substance: POLYETHYLENE GLYCOL 3350\POTASSIUM CHLORIDE\SODIUM BICARBONATE\SODIUM CHLORIDE
     Dosage: 1 DF, DAILY PRN
     Route: 048
     Dates: start: 20121203

REACTIONS (1)
  - Androgen deficiency [Not Recovered/Not Resolved]

NARRATIVE: CASE EVENT DATE: 20140512
